FAERS Safety Report 8286594-7 (Version None)
Quarter: 2012Q2

REPORT INFORMATION
  Report Type: 
  Country: None (occurrence: None)
  Receive Date: 20120416
  Receipt Date: 20120410
  Transmission Date: 20120825
  Serious: Yes (Life-Threatening)
  Sender: FDA-Public Use
  Company Number: FR-NAPPMUNDI-GBR-2012-0010294

PATIENT
  Sex: Female

DRUGS (11)
  1. SINEMET [Concomitant]
     Dosage: 100 MG, UNK
     Dates: start: 20120101
  2. OXYCODONE HCL [Suspect]
     Indication: PRODUCT USED FOR UNKNOWN INDICATION
     Dosage: 10 MG, BID
     Route: 048
     Dates: start: 20111214, end: 20111214
  3. REQUIP [Concomitant]
     Dosage: UNK
     Dates: start: 20120101
  4. KETOPROFEN [Concomitant]
     Dosage: 100 MG, UNK
     Route: 042
     Dates: start: 20111215, end: 20111215
  5. AMANTADINE HCL [Concomitant]
     Dosage: UNK
     Dates: start: 20120101
  6. TEMAZEPAM [Concomitant]
     Dosage: 50 UNK, UNK
     Dates: start: 20111214, end: 20111214
  7. OXYCODONE HCL [Suspect]
     Indication: PRODUCT USED FOR UNKNOWN INDICATION
     Dosage: 10 MG, TID
     Route: 048
     Dates: start: 20111214, end: 20111214
  8. AMLODIPINE BESYLATE [Concomitant]
     Dosage: 5 MG, UNK
  9. LYRICA [Concomitant]
     Dosage: 50 MG, UNK
  10. IOPAMIDOL [Concomitant]
     Dosage: 25 MG, BID
     Dates: start: 20111215, end: 20111215
  11. PANTOPRAZOLE [Concomitant]
     Dosage: UNK
     Dates: start: 20111214, end: 20111214

REACTIONS (3)
  - ACUTE RESPIRATORY FAILURE [None]
  - CONVULSION [None]
  - COMA [None]
